FAERS Safety Report 5519946-6 (Version None)
Quarter: 2008Q1

REPORT INFORMATION
  Report Type: 
  Country: None (occurrence: None)
  Receive Date: 20071116
  Receipt Date: 20071107
  Transmission Date: 20080703
  Serious: Yes (Hospitalization)
  Sender: FDA-Public Use
  Company Number: FR-ASTRAZENECA-2007CG01576

PATIENT
  Age: 22836 Day
  Sex: Female

DRUGS (18)
  1. DIPRIVAN [Suspect]
     Indication: GENERAL ANAESTHESIA
     Route: 042
     Dates: start: 20070911, end: 20070911
  2. KETOPROFEN [Suspect]
     Indication: ANALGESIA
     Route: 048
     Dates: start: 20070912, end: 20070921
  3. PROPOXYPHENE HCL AND ACETAMINOPHEN [Suspect]
     Indication: ANALGESIA
     Route: 048
     Dates: start: 20070912, end: 20070916
  4. ACETAMINOPHEN [Suspect]
     Indication: ANALGESIA
     Route: 048
     Dates: start: 20070917, end: 20070922
  5. SEVORANE [Suspect]
     Indication: GENERAL ANAESTHESIA
     Route: 055
     Dates: start: 20070911, end: 20070911
  6. CEFAZOLIN [Suspect]
     Route: 042
     Dates: start: 20070911, end: 20070911
  7. NIMBEX [Suspect]
     Indication: GENERAL ANAESTHESIA
     Route: 042
     Dates: start: 20070911, end: 20070911
  8. KETAMINE HCL [Suspect]
     Route: 042
     Dates: start: 20070911, end: 20070911
  9. INEXIUM [Concomitant]
     Dates: start: 20070912, end: 20070921
  10. INEXIUM [Concomitant]
  11. LEVOTHYROXINE SODIUM [Concomitant]
  12. LOVENOX [Concomitant]
     Indication: THROMBOSIS PROPHYLAXIS
     Dates: start: 20070911
  13. ATROPINE [Concomitant]
     Dates: start: 20070911, end: 20070911
  14. ACUPAN [Concomitant]
     Indication: ANALGESIA
     Dates: start: 20070911, end: 20070912
  15. SUFENTANIL CITRATE [Concomitant]
     Indication: GENERAL ANAESTHESIA
     Dates: start: 20070911, end: 20070911
  16. VENOFER [Concomitant]
     Dates: start: 20070911, end: 20070911
  17. PERFALGAN [Concomitant]
     Indication: ANALGESIA
     Dates: start: 20070911, end: 20070912
  18. PERFALGAN [Concomitant]
     Dates: start: 20070922, end: 20070923

REACTIONS (5)
  - CONFUSIONAL STATE [None]
  - HEPATITIS [None]
  - PANCYTOPENIA [None]
  - PYREXIA [None]
  - RENAL FAILURE [None]
